FAERS Safety Report 7798015-9 (Version None)
Quarter: 2011Q4

REPORT INFORMATION
  Report Type: 
  Country: None (occurrence: None)
  Receive Date: 20111004
  Receipt Date: 20111004
  Transmission Date: 20120403
  Serious: Yes (Hospitalization)
  Sender: FDA-Public Use
  Company Number: None

PATIENT
  Age: 65 Year
  Sex: Male
  Weight: 126.1 kg

DRUGS (1)
  1. WARFARIN SODIUM [Suspect]
     Indication: ATRIAL FIBRILLATION
     Dosage: 7.5 MG EVERY DAY PO
     Route: 048
     Dates: start: 20110404, end: 20110511

REACTIONS (5)
  - RECTAL HAEMORRHAGE [None]
  - HAEMORRHOIDS [None]
  - GASTRIC HAEMORRHAGE [None]
  - HYPOTENSION [None]
  - HAEMOGLOBIN DECREASED [None]
